FAERS Safety Report 19672907 (Version 1)
Quarter: 2021Q3

REPORT INFORMATION
  Report Type: Spontaneous
  Country: FR (occurrence: FR)
  Receive Date: 20210809
  Receipt Date: 20210809
  Transmission Date: 20211014
  Serious: Yes (Hospitalization, Other)
  Sender: FDA-Public Use
  Company Number: NVSC2021FR175511

PATIENT
  Age: 28 Year
  Sex: Male

DRUGS (2)
  1. ALPRAZOLAM. [Suspect]
     Active Substance: ALPRAZOLAM
     Indication: PRODUCT USED FOR UNKNOWN INDICATION
     Dosage: UNK (8 X 0.5MG/J)
     Route: 048
  2. CANNABIS SATIVA [Suspect]
     Active Substance: CANNABIS SATIVA FLOWERING TOP
     Indication: PRODUCT USED FOR UNKNOWN INDICATION
     Dosage: UNK (EN MOYENNE ENTRE 15 ET 20 JOINTS/J ET JUSQU A 25)
     Route: 055

REACTIONS (3)
  - Cognitive disorder [Recovering/Resolving]
  - Abulia [Recovering/Resolving]
  - Drug dependence [Recovering/Resolving]
